FAERS Safety Report 25535985 (Version 2)
Quarter: 2025Q3

REPORT INFORMATION
  Report Type: Spontaneous
  Country: RU (occurrence: RU)
  Receive Date: 20250709
  Receipt Date: 20250825
  Transmission Date: 20251020
  Serious: Yes (Other)
  Sender: NOVARTIS
  Company Number: RU-002147023-NVSC2025RU107276

PATIENT
  Sex: Female
  Weight: 110 kg

DRUGS (9)
  1. RIBOCICLIB [Suspect]
     Active Substance: RIBOCICLIB
     Indication: Hormone receptor positive HER2 negative breast cancer
     Dosage: 600 MG, QD (DAYS 1-21 WITH A 28-DAY CYCLE.)
     Route: 048
     Dates: start: 202112
  2. ANASTROZOLE [Concomitant]
     Active Substance: ANASTROZOLE
     Indication: Product used for unknown indication
     Dosage: 1 MG, QD
     Route: 048
     Dates: start: 202111
  3. DENOSUMAB [Concomitant]
     Active Substance: DENOSUMAB
     Indication: Product used for unknown indication
     Route: 030
     Dates: start: 202111
  4. HYDROCHLOROTHIAZIDE [Concomitant]
     Active Substance: HYDROCHLOROTHIAZIDE
     Indication: Product used for unknown indication
     Dosage: 12.5 MG, QD
     Route: 065
  5. VALSARTAN [Concomitant]
     Active Substance: VALSARTAN
     Indication: Product used for unknown indication
     Dosage: 160 MG, QD
     Route: 065
  6. AMLODIPINE [Concomitant]
     Active Substance: AMLODIPINE BESYLATE
     Indication: Product used for unknown indication
     Dosage: 5 MG, QD
     Route: 065
  7. SITAGLIPTIN [Concomitant]
     Active Substance: SITAGLIPTIN
     Indication: Product used for unknown indication
     Dosage: 100 MG, QD
     Route: 065
  8. METFORMIN [Concomitant]
     Active Substance: METFORMIN HYDROCHLORIDE
     Indication: Product used for unknown indication
     Dosage: 1000 MG, QD
     Route: 065
  9. Phosphogliv [Concomitant]
     Indication: Product used for unknown indication
     Route: 065

REACTIONS (10)
  - Neutropenia [Unknown]
  - Leukopenia [Unknown]
  - Metastases to bone [Unknown]
  - Steatohepatitis [Unknown]
  - Asthenia [Unknown]
  - Lymphadenopathy [Unknown]
  - Hyperplasia [Unknown]
  - Osteosclerosis [Unknown]
  - Hepatic cyst [Unknown]
  - Cell death [Unknown]

NARRATIVE: CASE EVENT DATE: 20230101
